FAERS Safety Report 15302633 (Version 1)
Quarter: 2018Q3

REPORT INFORMATION
  Report Type: Spontaneous
  Country: US (occurrence: US)
  Receive Date: 20180821
  Receipt Date: 20180821
  Transmission Date: 20181010
  Serious: No
  Sender: FDA-Public Use
  Company Number: US-SA-2018SA225874

PATIENT
  Age: 50 Year
  Sex: Female

DRUGS (8)
  1. DITROPAN [Concomitant]
     Active Substance: OXYBUTYNIN CHLORIDE
  2. DULCOLAX (BISACODYL) [Concomitant]
     Active Substance: BISACODYL
  3. IMIPRAMINE PAMOATE. [Concomitant]
     Active Substance: IMIPRAMINE PAMOATE
  4. VITAMIN D2 [Concomitant]
     Active Substance: ERGOCALCIFEROL
  5. VICOPROFEN [Concomitant]
     Active Substance: HYDROCODONE BITARTRATE\IBUPROFEN
  6. AUBAGIO [Suspect]
     Active Substance: TERIFLUNOMIDE
     Indication: MULTIPLE SCLEROSIS
     Dosage: 14 MG, QD
     Route: 048
     Dates: start: 20150701
  7. PAXIL [PIROXICAM] [Concomitant]
  8. BACLOFEN. [Concomitant]
     Active Substance: BACLOFEN

REACTIONS (4)
  - Memory impairment [Unknown]
  - Gait disturbance [Unknown]
  - Asthenia [Unknown]
  - Sensory disturbance [Unknown]

NARRATIVE: CASE EVENT DATE: 20180810
